FAERS Safety Report 13433061 (Version 3)
Quarter: 2022Q3

REPORT INFORMATION
  Report Type: Spontaneous
  Country: CH (occurrence: CH)
  Receive Date: 20170412
  Receipt Date: 20220914
  Transmission Date: 20221026
  Serious: Yes (Death, Other)
  Sender: FDA-Public Use
  Company Number: CH-MLMSERVICE-20170227-0626606-1

PATIENT
  Age: 80 Year
  Sex: Male
  Weight: 76 kg

DRUGS (14)
  1. METHYLPREDNISOLONE [Suspect]
     Active Substance: METHYLPREDNISOLONE
     Indication: Hepatitis
     Dosage: UNK, HIGH-DOSE CORTOCISTEROIDS
     Dates: start: 2009
  2. METHYLPREDNISOLONE [Suspect]
     Active Substance: METHYLPREDNISOLONE
     Indication: Immunosuppressant drug therapy
  3. AZATHIOPRINE [Suspect]
     Active Substance: AZATHIOPRINE
     Indication: Hepatitis
     Dosage: UNK
     Dates: start: 2011, end: 2011
  4. AZATHIOPRINE [Suspect]
     Active Substance: AZATHIOPRINE
     Indication: Immunosuppressant drug therapy
     Dosage: UNK
     Dates: start: 2014, end: 2015
  5. AZATHIOPRINE [Suspect]
     Active Substance: AZATHIOPRINE
     Dosage: UNK
     Dates: start: 2009, end: 2015
  6. BUDESONIDE [Suspect]
     Active Substance: BUDESONIDE
     Indication: Hepatitis
     Dosage: UNK, HIGH-DOSE CORTOCISTEROIDS
     Dates: start: 2011, end: 2012
  7. BUDESONIDE [Suspect]
     Active Substance: BUDESONIDE
     Indication: Immunosuppressant drug therapy
     Dosage: UNK
     Dates: start: 2009
  8. PREDNISONE [Suspect]
     Active Substance: PREDNISONE
     Indication: Hepatitis
     Dosage: UNK, HIGH-DOSE CORTOCISTEROIDS
     Dates: start: 2013, end: 2013
  9. PREDNISONE [Suspect]
     Active Substance: PREDNISONE
     Indication: Immunosuppressant drug therapy
     Dosage: UNK
     Dates: start: 2009
  10. PREDNISOLONE [Suspect]
     Active Substance: PREDNISOLONE
     Indication: Hepatitis
     Dosage: UNK, HIGH-DOSE CORTOCISTEROIDS
     Dates: start: 2010, end: 2010
  11. PREDNISOLONE [Suspect]
     Active Substance: PREDNISOLONE
     Dosage: UNK, HIGH-DOSE CORTOCISTEROIDS
     Dates: start: 2011, end: 2011
  12. PREDNISOLONE [Suspect]
     Active Substance: PREDNISOLONE
     Dosage: UNK, HIGH-DOSE CORTOCISTEROIDS
     Dates: start: 2014, end: 2015
  13. CELLCEPT [Suspect]
     Active Substance: MYCOPHENOLATE MOFETIL
     Indication: Hepatitis
     Dosage: UNK
     Dates: start: 2011, end: 2011
  14. CELLCEPT [Suspect]
     Active Substance: MYCOPHENOLATE MOFETIL
     Indication: Immunosuppressant drug therapy
     Dosage: UNK
     Dates: start: 2009

REACTIONS (1)
  - Visceral leishmaniasis [Fatal]
